FAERS Safety Report 5303023-3 (Version None)
Quarter: 2007Q2

REPORT INFORMATION
  Report Type: 
  Country: None (occurrence: None)
  Receive Date: 20070413
  Receipt Date: 20070330
  Transmission Date: 20071010
  Serious: Yes (Disabling, Other)
  Sender: FDA-Public Use
  Company Number: DSA_29264_2007

PATIENT
  Age: 75 Year
  Sex: Female
  Weight: 75.2971 kg

DRUGS (6)
  1. ATIVAN [Suspect]
     Indication: ANXIETY DISORDER
     Dosage: 1 MG TID; PO
     Route: 048
     Dates: start: 19960101, end: 20061101
  2. ATIVAN [Suspect]
     Indication: INSOMNIA
     Dosage: 1 MG TID; PO
     Route: 048
     Dates: start: 19960101, end: 20061101
  3. ATIVAN [Suspect]
     Indication: ANXIETY DISORDER
     Dosage: VAR TID; PO
     Route: 048
     Dates: start: 20061101
  4. ATIVAN [Suspect]
     Indication: INSOMNIA
     Dosage: VAR TID; PO
     Route: 048
     Dates: start: 20061101
  5. PREDNISONE TAB [Concomitant]
  6. LISINOPRIL [Concomitant]

REACTIONS (6)
  - ALOPECIA [None]
  - CATARACT [None]
  - DECREASED APPETITE [None]
  - HYPERTENSION [None]
  - NAUSEA [None]
  - VISION BLURRED [None]
